FAERS Safety Report 20732552 (Version 1)
Quarter: 2022Q2

REPORT INFORMATION
  Report Type: Spontaneous
  Country: US (occurrence: US)
  Receive Date: 20220420
  Receipt Date: 20220420
  Transmission Date: 20220721
  Serious: No
  Sender: FDA-Public Use
  Company Number: US-PFIZER INC-202101298793

PATIENT
  Age: 33 Year
  Sex: Male

DRUGS (1)
  1. EUCRISA [Suspect]
     Active Substance: CRISABOROLE
     Indication: Dyshidrotic eczema
     Dosage: 2X/DAY (APPLY TO HANDS TWICE A DAY (BID) FOR 2 WEEKS)

REACTIONS (3)
  - Dyshidrotic eczema [Unknown]
  - Condition aggravated [Unknown]
  - Off label use [Unknown]
